FAERS Safety Report 5750359-8 (Version None)
Quarter: 2008Q2

REPORT INFORMATION
  Report Type: 
  Country: None (occurrence: None)
  Receive Date: 20080523
  Receipt Date: 20080523
  Transmission Date: 20081010
  Serious: Yes (Hospitalization, Disabling, Other)
  Sender: FDA-Public Use
  Company Number: None

PATIENT
  Age: 57 Year
  Sex: Female
  Weight: 58.9676 kg

DRUGS (1)
  1. AVELOX [Suspect]
     Indication: URINARY TRACT INFECTION
     Dosage: 1  PO
     Route: 048
     Dates: start: 20070730, end: 20070730

REACTIONS (5)
  - DYSPHAGIA [None]
  - EYE SWELLING [None]
  - PALPITATIONS [None]
  - PRURITUS [None]
  - URTICARIA [None]
